FAERS Safety Report 13471903 (Version 1)
Quarter: 2017Q2

REPORT INFORMATION
  Report Type: Spontaneous
  Country: US (occurrence: US)
  Receive Date: 20170423
  Receipt Date: 20170423
  Transmission Date: 20170830
  Serious: Yes (Hospitalization, Other)
  Sender: FDA-Public Use
  Company Number: None

PATIENT
  Age: 44 Year
  Sex: Male
  Weight: 72.64 kg

DRUGS (10)
  1. ATROVASTATINE [Concomitant]
  2. AMIODORONE [Concomitant]
     Active Substance: AMIODARONE
  3. BRILINTA [Concomitant]
     Active Substance: TICAGRELOR
  4. BRILINTA [Suspect]
     Active Substance: TICAGRELOR
     Indication: STENT PLACEMENT
  5. METOPROLOL. [Concomitant]
     Active Substance: METOPROLOL
  6. ASPIRIN. [Concomitant]
     Active Substance: ASPIRIN
  7. JARDIANCE [Concomitant]
     Active Substance: EMPAGLIFLOZIN
  8. FERROUS SULFATE. [Concomitant]
     Active Substance: FERROUS SULFATE
  9. PRILOSEC [Concomitant]
     Active Substance: OMEPRAZOLE MAGNESIUM
  10. LISINOPRIL. [Concomitant]
     Active Substance: LISINOPRIL

REACTIONS (7)
  - Hypotension [None]
  - Abdominal pain upper [None]
  - Weight decreased [None]
  - Gastrooesophageal reflux disease [None]
  - Malaise [None]
  - Impaired work ability [None]
  - Chest pain [None]

NARRATIVE: CASE EVENT DATE: 20170413
